FAERS Safety Report 24936698 (Version 2)
Quarter: 2025Q1

REPORT INFORMATION
  Report Type: Other
  Country: CZ (occurrence: CZ)
  Receive Date: 20250206
  Receipt Date: 20250221
  Transmission Date: 20250408
  Serious: Yes (Other)
  Sender: EMD SERONO INC
  Company Number: CZ-Merck Healthcare KGaA-2025004817

PATIENT
  Age: 59 Year
  Sex: Male
  Weight: 105 kg

DRUGS (4)
  1. METFORMIN [Suspect]
     Active Substance: METFORMIN HYDROCHLORIDE
     Indication: Diabetes mellitus
     Dosage: 2G DAILY (WITH GRADUAL UP-TITRATION)
  2. LEVOTHYROXINE [Suspect]
     Active Substance: LEVOTHYROXINE
     Indication: Product used for unknown indication
  3. ROSUVASTATIN [Suspect]
     Active Substance: ROSUVASTATIN
     Indication: Product used for unknown indication
     Dosage: 20 MG DAILY
  4. INDAPAMIDE\TELMISARTAN [Suspect]
     Active Substance: INDAPAMIDE\TELMISARTAN
     Indication: Blood pressure measurement
     Dosage: 80/2.5 MG, 1-0-0

REACTIONS (4)
  - Erectile dysfunction [Recovered/Resolved]
  - Weight increased [Unknown]
  - Hyperuricaemia [Unknown]
  - Condition aggravated [Unknown]
